FAERS Safety Report 23971920 (Version 3)
Quarter: 2024Q4

REPORT INFORMATION
  Report Type: Report from Study
  Country: CN (occurrence: CN)
  Receive Date: 20240613
  Receipt Date: 20241119
  Transmission Date: 20250115
  Serious: Yes (Death, Other)
  Sender: PFIZER
  Company Number: CN-TAKEDA-2024TUS024261

PATIENT
  Age: 85 Year
  Sex: Male
  Weight: 46 kg

DRUGS (6)
  1. ADCETRIS [Suspect]
     Active Substance: BRENTUXIMAB VEDOTIN
     Indication: Angioimmunoblastic T-cell lymphoma
     Dosage: 50 MILLIGRAM, Q3WEEKS
     Route: 041
     Dates: start: 20240229
  2. HUMAN RED BLOOD CELL [Concomitant]
     Active Substance: HUMAN RED BLOOD CELL
     Indication: Anaemia
     Dosage: UNK UNK, QD
     Route: 041
     Dates: start: 20240301, end: 20240301
  3. COENZYME Q10 [Concomitant]
     Active Substance: DIETARY SUPPLEMENT\UBIDECARENONE
     Indication: Arteriosclerosis
     Dosage: 10 MILLIGRAM, TID
     Route: 048
     Dates: start: 20240215, end: 20240309
  4. HUMAN PLASMA [Concomitant]
     Active Substance: HUMAN PLASMA
     Indication: Coagulopathy
     Dosage: 200 MILLILITER, QD
     Route: 042
     Dates: start: 20240229, end: 20240229
  5. HUMAN PLASMA [Concomitant]
     Active Substance: HUMAN PLASMA
     Dosage: 160 MILLILITER, QD
     Route: 042
     Dates: start: 20240302, end: 20240302
  6. CRYOPRECIPITATED ANTIHEMOPHILIC FACTOR (HUMAN) [Concomitant]
     Active Substance: CRYOPRECIPITATED ANTIHEMOPHILIC FACTOR (HUMAN)
     Indication: Coagulopathy
     Dosage: UNK UNK, QD
     Route: 048
     Dates: start: 20240302, end: 20240302

REACTIONS (13)
  - Pneumonia [Fatal]
  - Myelosuppression [Not Recovered/Not Resolved]
  - Multiple organ dysfunction syndrome [Not Recovered/Not Resolved]
  - Hypokalaemia [Recovered/Resolved]
  - Myocardial ischaemia [Not Recovered/Not Resolved]
  - Liver injury [Not Recovered/Not Resolved]
  - Cardiac failure [Not Recovered/Not Resolved]
  - Hypoglycaemia [Not Recovered/Not Resolved]
  - Cytomegalovirus infection [Not Recovered/Not Resolved]
  - COVID-19 [Not Recovered/Not Resolved]
  - Mycoplasma infection [Not Recovered/Not Resolved]
  - Hypocalcaemia [Not Recovered/Not Resolved]
  - Ventricular extrasystoles [Not Recovered/Not Resolved]

NARRATIVE: CASE EVENT DATE: 20240303
